FAERS Safety Report 23061463 (Version 1)
Quarter: 2023Q4

REPORT INFORMATION
  Report Type: Spontaneous
  Country: US (occurrence: US)
  Receive Date: 20231013
  Receipt Date: 20231013
  Transmission Date: 20240109
  Serious: Yes (Death, Other)
  Sender: FDA-Public Use
  Company Number: US-BEH-2023163968

PATIENT
  Age: 68 Year
  Sex: Male

DRUGS (1)
  1. HUMAN IMMUNOGLOBULIN G [Suspect]
     Active Substance: HUMAN IMMUNOGLOBULIN G
     Indication: Blood immunoglobulin G decreased
     Route: 042

REACTIONS (10)
  - Transfusion-related acute lung injury [Fatal]
  - Chest discomfort [Fatal]
  - Dyspnoea [Fatal]
  - Asthenia [Fatal]
  - Chills [Fatal]
  - Diffuse alveolar damage [Fatal]
  - Respiratory failure [Fatal]
  - Leukocytosis [Unknown]
  - Pleural effusion [Unknown]
  - Lung opacity [Fatal]
